FAERS Safety Report 8029431-8 (Version None)
Quarter: 2012Q1

REPORT INFORMATION
  Report Type: 
  Country: None (occurrence: None)
  Receive Date: 20120107
  Receipt Date: 20111212
  Transmission Date: 20120608
  Serious: No
  Sender: FDA-Public Use
  Company Number: US-ROXANE LABORATORIES, INC.-2011-RO-01791RO

PATIENT
  Age: 79 Year
  Sex: Male

DRUGS (2)
  1. LISINOPRIL [Concomitant]
     Indication: HYPERTENSION
  2. IPRATROPIUM BROMIDE [Suspect]
     Indication: HYPERSENSITIVITY
     Route: 055
     Dates: start: 20111018, end: 20111019

REACTIONS (2)
  - DRY MOUTH [None]
  - HYPOACUSIS [None]
